FAERS Safety Report 9436729 (Version 4)
Quarter: 2014Q1

REPORT INFORMATION
  Report Type: Report from Study
  Country: JP (occurrence: JP)
  Receive Date: 20130802
  Receipt Date: 20140116
  Transmission Date: 20141002
  Serious: Yes (Hospitalization)
  Sender: FDA-Public Use
  Company Number: JP-JNJFOC-20130716617

PATIENT
  Age: 41 Year
  Sex: Female
  Weight: 58 kg

DRUGS (31)
  1. SIMPONI [Suspect]
     Indication: RHEUMATOID ARTHRITIS
     Route: 058
     Dates: start: 20130528, end: 20130528
  2. SIMPONI [Suspect]
     Indication: RHEUMATOID ARTHRITIS
     Route: 058
     Dates: start: 20130705, end: 20130705
  3. SIMPONI [Suspect]
     Indication: RHEUMATOID ARTHRITIS
     Route: 058
     Dates: start: 20130802, end: 20130802
  4. METHOTREXATE [Suspect]
     Indication: RHEUMATOID ARTHRITIS
     Route: 065
     Dates: start: 20121220, end: 20130617
  5. MEDROL [Concomitant]
     Indication: RHEUMATOID ARTHRITIS
     Route: 048
     Dates: end: 20130617
  6. MEDROL [Concomitant]
     Indication: RHEUMATOID ARTHRITIS
     Route: 048
     Dates: start: 20130621
  7. CELECOX [Concomitant]
     Indication: RHEUMATOID ARTHRITIS
     Route: 048
     Dates: start: 20130717
  8. CELECOX [Concomitant]
     Indication: RHEUMATOID ARTHRITIS
     Route: 048
     Dates: end: 20130617
  9. VOLTAREN [Concomitant]
     Indication: RHEUMATOID ARTHRITIS
     Route: 048
     Dates: end: 20130617
  10. FOLIAMIN [Concomitant]
     Indication: PROPHYLAXIS
     Route: 048
  11. FOSAMAC [Concomitant]
     Route: 048
  12. REBAMIPIDE [Concomitant]
     Route: 048
  13. TAKEPRON [Concomitant]
     Route: 048
  14. LYRICA [Concomitant]
     Indication: RHEUMATOID ARTHRITIS
     Route: 048
  15. SOFALCONE [Concomitant]
     Route: 048
  16. CYMBALTA [Concomitant]
     Route: 048
  17. ROZEREM [Concomitant]
     Route: 048
  18. REMERON [Concomitant]
     Route: 048
  19. AMOBAN [Concomitant]
     Route: 048
  20. SEPAZON [Concomitant]
     Route: 048
  21. ABILIFY [Concomitant]
     Route: 048
  22. LEXOTAN [Concomitant]
     Route: 048
  23. SOLANAX [Concomitant]
     Route: 048
  24. RESLIN [Concomitant]
     Route: 048
  25. MAGLAX [Concomitant]
     Route: 048
  26. LAXOBERON [Concomitant]
     Route: 048
  27. SEISHOKU [Concomitant]
     Route: 065
  28. PAXIL [Concomitant]
     Route: 048
  29. BAKTAR [Concomitant]
     Indication: ANTIBIOTIC PROPHYLAXIS
     Route: 048
  30. BAKTAR [Concomitant]
     Indication: INTERSTITIAL LUNG DISEASE
     Route: 048
  31. VOLTAREN [Concomitant]
     Indication: RHEUMATOID ARTHRITIS
     Route: 054
     Dates: start: 20130809

REACTIONS (4)
  - Interstitial lung disease [Recovered/Resolved]
  - Malaise [Recovering/Resolving]
  - Productive cough [Recovering/Resolving]
  - Pyrexia [Recovering/Resolving]
